FAERS Safety Report 16979761 (Version 6)
Quarter: 2020Q2

REPORT INFORMATION
  Report Type: Report from Study
  Country: US (occurrence: US)
  Receive Date: 20191031
  Receipt Date: 20200424
  Transmission Date: 20200713
  Serious: Yes (Hospitalization, Other)
  Sender: FDA-Public Use
  Company Number: US-GLAXOSMITHKLINE-US2019TSO195699

PATIENT
  Age: 77 Year
  Sex: Female

DRUGS (4)
  1. NIRAPARIB [Suspect]
     Active Substance: NIRAPARIB
     Dosage: 200 MG, QD
  2. NIRAPARIB [Suspect]
     Active Substance: NIRAPARIB
     Dosage: 200 MG, QD
     Dates: start: 20200114
  3. NIRAPARIB [Suspect]
     Active Substance: NIRAPARIB
     Indication: OVARIAN CANCER
     Dosage: 300 MG, QD
     Route: 048
     Dates: start: 20191010, end: 20191014
  4. NIRAPARIB [Suspect]
     Active Substance: NIRAPARIB
     Dosage: 200 MG, QD

REACTIONS (24)
  - Palpitations [Unknown]
  - Blood pressure increased [Recovering/Resolving]
  - Speech disorder [Unknown]
  - Sinus disorder [Unknown]
  - Sensation of foreign body [Recovered/Resolved]
  - Abdominal discomfort [Unknown]
  - Constipation [Recovered/Resolved]
  - Blood count abnormal [Unknown]
  - Cough [Unknown]
  - Red blood cell count decreased [Unknown]
  - Carbohydrate antigen 125 increased [Unknown]
  - Stent placement [Unknown]
  - Biopsy lung [Unknown]
  - Transient ischaemic attack [Unknown]
  - Disease complication [Unknown]
  - Heart rate irregular [Unknown]
  - Blood thyroid stimulating hormone increased [Unknown]
  - Respiratory tract congestion [Unknown]
  - Pneumonia [Unknown]
  - Malignant neoplasm progression [Unknown]
  - Dyspnoea [Unknown]
  - Anxiety [Recovering/Resolving]
  - Heart rate increased [Unknown]
  - Sleep disorder [Unknown]

NARRATIVE: CASE EVENT DATE: 20191014
